FAERS Safety Report 18599423 (Version 2)
Quarter: 2020Q4

REPORT INFORMATION
  Report Type: Spontaneous
  Country: BG (occurrence: BG)
  Receive Date: 20201210
  Receipt Date: 20201223
  Transmission Date: 20210114
  Serious: Yes (Death)
  Sender: FDA-Public Use
  Company Number: BG-ROCHE-2730035

PATIENT
  Age: 63 Year
  Sex: Female

DRUGS (3)
  1. MABTHERA [Suspect]
     Active Substance: RITUXIMAB
     Indication: RHEUMATOID ARTHRITIS
     Dosage: 1000 MG BID EVERY 6 MONTHS
     Route: 041
     Dates: start: 201608, end: 202010
  2. OMEPRAZID [Concomitant]
     Active Substance: OMEPRAZOLE SODIUM
  3. FLOSTERON [Concomitant]

REACTIONS (1)
  - Death [Fatal]

NARRATIVE: CASE EVENT DATE: 202011
